FAERS Safety Report 11923883 (Version 2)
Quarter: 2016Q1

REPORT INFORMATION
  Report Type: Report from Study
  Country: EG (occurrence: EG)
  Receive Date: 20160118
  Receipt Date: 20160211
  Transmission Date: 20160526
  Serious: Yes (Death)
  Sender: FDA-Public Use
  Company Number: EG-ROCHE-1691439

PATIENT
  Age: 70 Year
  Sex: Female
  Weight: 108 kg

DRUGS (7)
  1. AVIL [Concomitant]
     Active Substance: PHENIRAMINE
     Indication: PROPHYLAXIS
     Route: 042
     Dates: start: 20151230, end: 20151231
  2. PARACETAMOL [Concomitant]
     Active Substance: ACETAMINOPHEN
     Indication: PROPHYLAXIS
     Route: 048
     Dates: start: 20151230, end: 20151231
  3. OBINUTUZUMAB [Suspect]
     Active Substance: OBINUTUZUMAB
     Dosage: LAST DOSE PRIOR TO SAE: 31/DEC/2015
     Route: 042
     Dates: start: 20151231, end: 20151231
  4. CHLORAMBUCIL [Suspect]
     Active Substance: CHLORAMBUCIL
     Indication: CHRONIC LYMPHOCYTIC LEUKAEMIA
     Dosage: THE LAST DOSE PRIOR TO THE EVENT WAS ADMINISTERED ON 30/DEC/2015.
     Route: 048
     Dates: start: 20151230, end: 20151230
  5. DEXAMETHASONE. [Concomitant]
     Active Substance: DEXAMETHASONE
     Indication: PROPHYLAXIS
     Route: 042
     Dates: start: 20151229, end: 20151231
  6. OBINUTUZUMAB [Suspect]
     Active Substance: OBINUTUZUMAB
     Indication: CHRONIC LYMPHOCYTIC LEUKAEMIA
     Dosage: LAST DOSE PRIOR TO SAE: 31/DEC/2015
     Route: 042
     Dates: start: 20151230, end: 20151230
  7. ALLOPURINOL. [Concomitant]
     Active Substance: ALLOPURINOL
     Indication: PROPHYLAXIS
     Route: 048
     Dates: start: 20151227, end: 20151231

REACTIONS (2)
  - Road traffic accident [Fatal]
  - Head injury [Fatal]

NARRATIVE: CASE EVENT DATE: 20160105
